FAERS Safety Report 5901624-2 (Version None)
Quarter: 2008Q3

REPORT INFORMATION
  Report Type: 
  Country: None (occurrence: None)
  Receive Date: 20080926
  Receipt Date: 20080926
  Transmission Date: 20090109
  Serious: Yes (Life-Threatening)
  Sender: FDA-Public Use
  Company Number: None

PATIENT
  Age: 61 Year
  Sex: Male
  Weight: 74.3899 kg

DRUGS (1)
  1. DEFINITY [Suspect]
     Indication: ISCHAEMIC CARDIOMYOPATHY
     Dosage: SEE NARRATIVE

REACTIONS (2)
  - APNOEA [None]
  - PULSE ABSENT [None]
